FAERS Safety Report 20482365 (Version 1)
Quarter: 2022Q1

REPORT INFORMATION
  Report Type: Spontaneous
  Country: GB (occurrence: GB)
  Receive Date: 20220217
  Receipt Date: 20220217
  Transmission Date: 20220424
  Serious: Yes (Other)
  Sender: FDA-Public Use
  Company Number: GB-MHRA-TPP30184256C7644021YC1643738859023

PATIENT
  Age: 90 Year
  Sex: Female
  Weight: 70 kg

DRUGS (27)
  1. ATORVASTATIN [Suspect]
     Active Substance: ATORVASTATIN
     Indication: Product used for unknown indication
     Dosage: 40 MILLIGRAM, TAKE ONE DAILY
     Route: 065
     Dates: start: 20211228, end: 20220201
  2. ATORVASTATIN [Suspect]
     Active Substance: ATORVASTATIN
     Indication: Ill-defined disorder
  3. CLOPIDOGREL [Suspect]
     Active Substance: CLOPIDOGREL BISULFATE
     Indication: Product used for unknown indication
     Dosage: 1 DOSAGE FORM, QD
     Route: 065
     Dates: start: 20220106, end: 20220121
  4. CLOPIDOGREL [Suspect]
     Active Substance: CLOPIDOGREL BISULFATE
     Indication: Ill-defined disorder
  5. ALENDRONIC ACID [Concomitant]
     Active Substance: ALENDRONIC ACID
     Indication: Product used for unknown indication
     Dosage: TAKE ON A FRIDAY
     Route: 065
     Dates: start: 20210819
  6. AMOXICILLIN [Concomitant]
     Active Substance: AMOXICILLIN
     Indication: Product used for unknown indication
     Dosage: 1 DOSAGE FORM, TID
     Route: 065
     Dates: start: 20211102, end: 20211107
  7. AMOXICILLIN [Concomitant]
     Active Substance: AMOXICILLIN
     Indication: Ill-defined disorder
  8. ASPIRIN [Concomitant]
     Active Substance: ASPIRIN
     Indication: Product used for unknown indication
     Dosage: 1 DOSAGE FORM, QD
     Route: 065
     Dates: start: 20220121
  9. ASPIRIN [Concomitant]
     Active Substance: ASPIRIN
     Indication: Ill-defined disorder
  10. CALCIUM CARBONATE\CHOLECALCIFEROL [Concomitant]
     Active Substance: CALCIUM CARBONATE\CHOLECALCIFEROL
     Indication: Product used for unknown indication
     Dosage: TAKE IN THE MORNING,1 DOSE
     Route: 065
     Dates: start: 20210819
  11. CALCIUM CARBONATE\CHOLECALCIFEROL [Concomitant]
     Active Substance: CALCIUM CARBONATE\CHOLECALCIFEROL
     Indication: Ill-defined disorder
  12. CARBOMER 980 [Concomitant]
     Active Substance: CARBOMER HOMOPOLYMER TYPE C (ALLYL PENTAERYTHRITOL CROSSLINKED)
     Indication: Dry eye
     Dosage: AS NECESSARY, APPLY ONE DROP AS NEEDED FOR DRY EYES
     Route: 065
     Dates: start: 20210819
  13. CARBOMER 980 [Concomitant]
     Active Substance: CARBOMER HOMOPOLYMER TYPE C (ALLYL PENTAERYTHRITOL CROSSLINKED)
     Indication: Ill-defined disorder
  14. CHLORPHENIRAMINE MALEATE [Concomitant]
     Active Substance: CHLORPHENIRAMINE MALEATE
     Indication: Rash pruritic
     Dosage: TAKE EVERY 4-6 HOURS
     Route: 065
     Dates: start: 20220121, end: 20220128
  15. CHLORPHENIRAMINE MALEATE [Concomitant]
     Active Substance: CHLORPHENIRAMINE MALEATE
     Indication: Ill-defined disorder
  16. CITALOPRAM [Concomitant]
     Active Substance: CITALOPRAM HYDROBROMIDE
     Indication: Product used for unknown indication
     Dosage: 16 MILLIGRAM, QD
     Route: 065
     Dates: start: 20210819
  17. CITALOPRAM [Concomitant]
     Active Substance: CITALOPRAM HYDROBROMIDE
     Indication: Ill-defined disorder
  18. FUROSEMIDE [Concomitant]
     Active Substance: FUROSEMIDE
     Indication: Product used for unknown indication
     Dosage: 1 DOSAGE FORM, BID
     Route: 065
     Dates: start: 20210819
  19. FUROSEMIDE [Concomitant]
     Active Substance: FUROSEMIDE
     Indication: Ill-defined disorder
  20. LANSOPRAZOLE [Concomitant]
     Active Substance: LANSOPRAZOLE
     Indication: Product used for unknown indication
     Dosage: 1 DOSAGE FORM, QD
     Route: 065
     Dates: start: 20210819
  21. LANSOPRAZOLE [Concomitant]
     Active Substance: LANSOPRAZOLE
     Indication: Ill-defined disorder
  22. PREDNISOLONE [Concomitant]
     Active Substance: PREDNISOLONE
     Indication: Product used for unknown indication
     Dosage: REDUCING DOSE
     Route: 065
     Dates: start: 20210819
  23. PREDNISOLONE [Concomitant]
     Active Substance: PREDNISOLONE
     Indication: Ill-defined disorder
  24. PREGABALIN [Concomitant]
     Active Substance: PREGABALIN
     Indication: Product used for unknown indication
     Dosage: 1 DOSAGE FORM, QD
     Route: 065
     Dates: start: 20210819
  25. PREGABALIN [Concomitant]
     Active Substance: PREGABALIN
     Indication: Ill-defined disorder
  26. MINERAL OIL\PARAFFIN [Concomitant]
     Active Substance: MINERAL OIL\PARAFFIN
     Indication: Pruritus
     Dosage: APPLY TWICE DAILY AS REQUIRED TO ITCHY SKIN
     Route: 065
     Dates: start: 20220121
  27. MINERAL OIL\PARAFFIN [Concomitant]
     Active Substance: MINERAL OIL\PARAFFIN
     Indication: Ill-defined disorder

REACTIONS (4)
  - Swelling face [Recovered/Resolved]
  - Rash [Recovered/Resolved]
  - Lip swelling [Unknown]
  - Swollen tongue [Unknown]

NARRATIVE: CASE EVENT DATE: 20220201
